FAERS Safety Report 7489196-5 (Version None)
Quarter: 2011Q2

REPORT INFORMATION
  Report Type: 
  Country: None (occurrence: None)
  Receive Date: 20110518
  Receipt Date: 20110504
  Transmission Date: 20111010
  Serious: No
  Sender: FDA-Public Use
  Company Number: US-B.I. PHARMACEUTICALS,INC./RIDGEFIELD-2011-BP-09130BP

PATIENT
  Sex: Male

DRUGS (7)
  1. PRADAXA [Suspect]
     Indication: CORONARY ARTERIAL STENT INSERTION
  2. SULFAZINE [Concomitant]
  3. AMIODARONE HCL [Concomitant]
     Dosage: 200 MG
     Dates: start: 20110331
  4. ASPIRIN [Concomitant]
     Dosage: 81 MG
     Dates: start: 20110331
  5. RESTORIL [Concomitant]
     Dosage: 15 MG
     Dates: start: 20110331
  6. PRADAXA [Suspect]
     Indication: ATRIAL FIBRILLATION
     Route: 048
  7. PLAVIX [Concomitant]
     Dosage: 75 MG

REACTIONS (1)
  - ATRIAL FIBRILLATION [None]
